FAERS Safety Report 4501549-3 (Version None)
Quarter: 2004Q3

REPORT INFORMATION
  Report Type: 
  Country: None (occurrence: None)
  Receive Date: 20040928
  Receipt Date: 20040827
  Transmission Date: 20050211
  Serious: No
  Sender: FDA-Public Use
  Company Number: 04P-163-0271688-00

PATIENT
  Age: 66 Year
  Sex: Female
  Weight: 63.5036 kg

DRUGS (8)
  1. HUMIRA [Suspect]
     Indication: RHEUMATOID ARTHRITIS
     Dosage: 40 MG, 1 IN 2 WK, SUBCUTANEOUS
     Route: 058
     Dates: start: 20040511
  2. ATORVASTATIN CALCIUM [Concomitant]
  3. CELECOXIB [Concomitant]
  4. METHOTREXATE SODIUM [Concomitant]
  5. PREDNISONE [Concomitant]
  6. FOLIC ACID [Concomitant]
  7. RABEPRAZOLE SODIUM [Concomitant]
  8. ALENDRONATE SODIUM [Concomitant]

REACTIONS (1)
  - WEIGHT INCREASED [None]
